FAERS Safety Report 7731256-5 (Version None)
Quarter: 2011Q3

REPORT INFORMATION
  Report Type: 
  Country: None (occurrence: None)
  Receive Date: 20110906
  Receipt Date: 20110114
  Transmission Date: 20111222
  Serious: No
  Sender: FDA-Public Use
  Company Number: FR-US-EMD SERONO, INC.-7031871

PATIENT
  Age: 30 Year
  Sex: Female

DRUGS (3)
  1. CHORIOGONADOTROPIN ALFA [Suspect]
     Indication: OVULATION INDUCTION
     Dosage: 2771 PG/ML
  2. DECAPETYL [Concomitant]
     Indication: PRODUCT USED FOR UNKNOWN INDICATION
  3. PUREGON [Suspect]
     Indication: OVULATION INDUCTION

REACTIONS (1)
  - MATERNAL EXPOSURE DURING PREGNANCY [None]
